FAERS Safety Report 9290341 (Version 1)
Quarter: 2013Q2

REPORT INFORMATION
  Report Type: Spontaneous
  Country: US (occurrence: US)
  Receive Date: 20130515
  Receipt Date: 20130515
  Transmission Date: 20140414
  Serious: No
  Sender: FDA-Public Use
  Company Number: US-PFIZER INC-2013147266

PATIENT
  Sex: Female

DRUGS (1)
  1. XELJANZ [Suspect]
     Dosage: 5 MG, 2X/DAY

REACTIONS (6)
  - Chills [Unknown]
  - Nervousness [Unknown]
  - Nasopharyngitis [Unknown]
  - Myalgia [Unknown]
  - Pain [Unknown]
  - Feeling hot [Unknown]
